FAERS Safety Report 9159612 (Version 1)
Quarter: 2013Q1

REPORT INFORMATION
  Report Type: Spontaneous
  Country: US (occurrence: None)
  Receive Date: 20130312
  Receipt Date: 20130312
  Transmission Date: 20140127
  Serious: Yes (Hospitalization)
  Sender: FDA-Public Use
  Company Number: None

PATIENT
  Age: 58 Year
  Sex: Female
  Weight: 62 kg

DRUGS (2)
  1. CEFEPIME [Suspect]
     Indication: PNEUMONIA
     Dosage: 1 GRAM Q12H IV
     Route: 042
     Dates: start: 20130227, end: 20130305
  2. CEFEPIME [Suspect]
     Indication: NEUTROPENIA
     Dosage: 1 GRAM Q12H IV
     Route: 042
     Dates: start: 20130227, end: 20130305

REACTIONS (5)
  - Status epilepticus [None]
  - Cerebral haemorrhage [None]
  - Convulsive threshold lowered [None]
  - Renal impairment [None]
  - Drug level increased [None]
